FAERS Safety Report 13486502 (Version 1)
Quarter: 2017Q2

REPORT INFORMATION
  Report Type: Spontaneous
  Country: PT (occurrence: PT)
  Receive Date: 20170426
  Receipt Date: 20170426
  Transmission Date: 20170830
  Serious: Yes (Death, Other)
  Sender: FDA-Public Use
  Company Number: PT-009507513-1704PRT003972

PATIENT
  Age: 55 Year
  Sex: Male

DRUGS (1)
  1. ZERBAXA [Suspect]
     Active Substance: CEFTOLOZANE SULFATE\TAZOBACTAM SODIUM
     Indication: PNEUMONIA
     Dosage: 2 G CEFTOLOZANE + 1 G TAZOBACTAM  EVERY 8 HOURS
     Dates: start: 20170331, end: 2017

REACTIONS (5)
  - Death [Fatal]
  - Adverse event [Unknown]
  - Product use in unapproved indication [Unknown]
  - Product use issue [Unknown]
  - Anastomotic complication [Unknown]

NARRATIVE: CASE EVENT DATE: 20170331
